FAERS Safety Report 12091539 (Version 6)
Quarter: 2018Q4

REPORT INFORMATION
  Report Type: Report from Study
  Country: GB (occurrence: GB)
  Receive Date: 20160218
  Receipt Date: 20181219
  Transmission Date: 20190204
  Serious: Yes (Hospitalization, Other)
  Sender: FDA-Public Use
  Company Number: GB-GILEAD-2016-0197207

PATIENT
  Age: 56 Year
  Sex: Female
  Weight: 78 kg

DRUGS (18)
  1. IDELALISIB [Suspect]
     Active Substance: IDELALISIB
     Indication: B-CELL LYMPHOMA
     Dosage: 50 MG, BID
     Route: 048
     Dates: start: 20151209, end: 20160201
  2. PARACETAMOL [Concomitant]
     Active Substance: ACETAMINOPHEN
     Indication: HEADACHE
     Route: 048
     Dates: start: 20151002
  3. VAGIFEM [Concomitant]
     Active Substance: ESTRADIOL
     Indication: HORMONE REPLACEMENT THERAPY
     Route: 048
     Dates: start: 201405
  4. TIRABRUTINIB [Suspect]
     Active Substance: TIRABRUTINIB
     Indication: B-CELL LYMPHOMA
     Dosage: 20 MG, BID
     Route: 048
     Dates: start: 20160207
  5. TIRABRUTINIB [Suspect]
     Active Substance: TIRABRUTINIB
     Dosage: 20 MG, BID
     Route: 048
     Dates: start: 20160208
  6. IDELALISIB [Suspect]
     Active Substance: IDELALISIB
     Dosage: 50 MG, BID
     Route: 048
     Dates: start: 20160207, end: 20160207
  7. PARACETAMOL [Concomitant]
     Active Substance: ACETAMINOPHEN
     Indication: CHILLS
     Route: 048
     Dates: start: 20160203, end: 20160207
  8. AZITHROMYCIN ANHYDROUS. [Concomitant]
     Active Substance: AZITHROMYCIN ANHYDROUS
     Route: 048
     Dates: start: 201401
  9. IVIG GAMMAPLEX [Concomitant]
     Route: 042
     Dates: start: 201401
  10. IDELALISIB [Suspect]
     Active Substance: IDELALISIB
     Dosage: 50 MG, BID
     Route: 048
     Dates: start: 20160301
  11. ALLOPURINOL. [Concomitant]
     Active Substance: ALLOPURINOL
     Route: 048
     Dates: start: 20151203
  12. TIRABRUTINIB [Suspect]
     Active Substance: TIRABRUTINIB
     Dosage: 20 MG, BID
     Route: 048
     Dates: start: 20151208, end: 20160201
  13. COTRIMOXAZOLE [Concomitant]
     Active Substance: SULFAMETHOXAZOLE\TRIMETHOPRIM
     Route: 048
     Dates: start: 201306
  14. SENNA                              /00571901/ [Concomitant]
     Active Substance: SENNOSIDES A AND B
     Route: 048
     Dates: start: 20160118
  15. ACICLOVIR [Concomitant]
     Active Substance: ACYCLOVIR
     Route: 048
     Dates: start: 201306
  16. PARACETAMOL [Concomitant]
     Active Substance: ACETAMINOPHEN
     Indication: BACK PAIN
  17. LACTULOSE. [Concomitant]
     Active Substance: LACTULOSE
     Indication: CONSTIPATION
     Dosage: UNK
     Route: 048
     Dates: start: 20160118, end: 20160122
  18. PARACETAMOL [Concomitant]
     Active Substance: ACETAMINOPHEN
     Indication: PAIN

REACTIONS (1)
  - Cytokine storm [Recovered/Resolved]

NARRATIVE: CASE EVENT DATE: 20160208
